FAERS Safety Report 9995540 (Version 1)
Quarter: 2014Q1

REPORT INFORMATION
  Report Type: Spontaneous
  Country: US (occurrence: None)
  Receive Date: 20140218
  Receipt Date: 20140218
  Transmission Date: 20141002
  Serious: Yes (Other)
  Sender: FDA-Public Use
  Company Number: 1000052508

PATIENT
  Age: 58 Year
  Sex: Female

DRUGS (1)
  1. VIIBRYD [Suspect]
     Indication: DEPRESSION
     Dosage: 20MG (20MG, 1 IN 1D) ORAL
     Route: 048

REACTIONS (5)
  - Drug ineffective [None]
  - Terminal insomnia [None]
  - Anxiety [None]
  - Panic attack [None]
  - Diarrhoea [None]
